FAERS Safety Report 15201833 (Version 1)
Quarter: 2018Q3

REPORT INFORMATION
  Report Type: Spontaneous
  Country: US (occurrence: US)
  Receive Date: 20180726
  Receipt Date: 20180726
  Transmission Date: 20181010
  Serious: No
  Sender: FDA-Public Use
  Company Number: US-MYLANLABS-2018M1050665

PATIENT
  Sex: Female

DRUGS (1)
  1. LIDOCAINE PATCH [Suspect]
     Active Substance: LIDOCAINE
     Indication: BACK PAIN
     Dosage: UNK

REACTIONS (5)
  - Product quality issue [Not Recovered/Not Resolved]
  - Off label use [Unknown]
  - Intentional product misuse [Recovered/Resolved]
  - Product adhesion issue [Not Recovered/Not Resolved]
  - No adverse event [Unknown]
